FAERS Safety Report 7893052-8 (Version None)
Quarter: 2011Q4

REPORT INFORMATION
  Report Type: 
  Country: None (occurrence: None)
  Receive Date: 20111104
  Receipt Date: 20110907
  Transmission Date: 20120403
  Serious: No
  Sender: FDA-Public Use
  Company Number: US-GLAXOSMITHKLINE-A0943730A

PATIENT
  Age: 80 Year
  Sex: Male

DRUGS (5)
  1. UNKNOWN MEDICATION [Concomitant]
  2. HORIZANT [Suspect]
     Indication: RESTLESS LEGS SYNDROME
     Dosage: 600MG PER DAY
     Route: 048
     Dates: start: 20110807
  3. ARTHRITIS MEDICATION [Concomitant]
  4. ANTIDEPRESSANT [Concomitant]
  5. CHOLESTEROL REDUCING AGENT [Concomitant]

REACTIONS (1)
  - DRUG INEFFECTIVE [None]
